FAERS Safety Report 16117811 (Version 2)
Quarter: 2019Q2

REPORT INFORMATION
  Report Type: Spontaneous
  Country: US (occurrence: US)
  Receive Date: 20190326
  Receipt Date: 20190407
  Transmission Date: 20190711
  Serious: No
  Sender: FDA-Public Use
  Company Number: US-AMGEN INC.-USASP2019045531

PATIENT
  Age: 76 Year
  Sex: Female
  Weight: 58.5 kg

DRUGS (1)
  1. AIMOVIG [Suspect]
     Active Substance: ERENUMAB-AOOE
     Indication: MIGRAINE PROPHYLAXIS
     Dosage: 70 MILLIGRAM, QMO
     Route: 065
     Dates: start: 201812

REACTIONS (6)
  - Device malfunction [Unknown]
  - Off label use [Unknown]
  - Accidental exposure to product [Unknown]
  - Wrong technique in product usage process [Unknown]
  - Nasopharyngitis [Unknown]
  - Injection site pain [Unknown]

NARRATIVE: CASE EVENT DATE: 201812
